FAERS Safety Report 10920109 (Version 1)
Quarter: 2015Q1

REPORT INFORMATION
  Report Type: Spontaneous
  Country: GB (occurrence: GB)
  Receive Date: 20150317
  Receipt Date: 20150317
  Transmission Date: 20150721
  Serious: Yes (Other)
  Sender: FDA-Public Use
  Company Number: GB-JNJFOC-20150303326

PATIENT
  Sex: Female

DRUGS (3)
  1. COUGH AND COLD PREPARATIONS [Suspect]
     Active Substance: UNSPECIFIED INGREDIENT
     Indication: PRODUCT USED FOR UNKNOWN INDICATION
     Route: 065
  2. PARACETAMOL [Suspect]
     Active Substance: ACETAMINOPHEN
     Indication: PRODUCT USED FOR UNKNOWN INDICATION
     Route: 065
  3. PARACETAMOL [Suspect]
     Active Substance: ACETAMINOPHEN
     Route: 065

REACTIONS (9)
  - Loss of consciousness [Unknown]
  - Overdose [Unknown]
  - Inappropriate schedule of drug administration [Unknown]
  - Heart rate decreased [Unknown]
  - Advanced sleep phase [Unknown]
  - Somnolence [Unknown]
  - Coma [Unknown]
  - Chest discomfort [Unknown]
  - Social avoidant behaviour [Unknown]
